FAERS Safety Report 25260444 (Version 1)
Quarter: 2025Q2

REPORT INFORMATION
  Report Type: Spontaneous
  Country: IT (occurrence: IT)
  Receive Date: 20250501
  Receipt Date: 20250501
  Transmission Date: 20250716
  Serious: Yes (Life-Threatening, Hospitalization)
  Sender: ALEXION PHARMACEUTICALS
  Company Number: None

PATIENT
  Age: 74 Year
  Weight: 58 kg

DRUGS (5)
  1. ROSUVASTATIN [Suspect]
     Active Substance: ROSUVASTATIN
     Indication: Acute coronary syndrome
     Dosage: 20 MILLIGRAM, 1/DAY
  2. ASPIRIN [Concomitant]
     Active Substance: ASPIRIN
  3. TICAGRELOR [Concomitant]
     Active Substance: TICAGRELOR
     Dosage: 90 MILLIGRAM, 1/DAY
  4. EZETIMIBE [Concomitant]
     Active Substance: EZETIMIBE
     Dosage: 10 MILLIGRAM, 1/DAY
  5. METOPROLOL [Concomitant]
     Active Substance: METOPROLOL
     Route: 065

REACTIONS (1)
  - Drug-induced liver injury [Recovering/Resolving]
